FAERS Safety Report 7414480-0 (Version None)
Quarter: 2011Q2

REPORT INFORMATION
  Report Type: 
  Country: None (occurrence: None)
  Receive Date: 20110414
  Receipt Date: 20110401
  Transmission Date: 20111010
  Serious: Yes (Hospitalization)
  Sender: FDA-Public Use
  Company Number: US-JNJFOC-20110403521

PATIENT
  Sex: Female
  Weight: 47.63 kg

DRUGS (1)
  1. SPORANOX [Suspect]
     Indication: FUNGAL INFECTION
     Route: 048

REACTIONS (4)
  - PYREXIA [None]
  - SKIN EXFOLIATION [None]
  - INTENTIONAL DRUG MISUSE [None]
  - RASH [None]
